FAERS Safety Report 5134058-1 (Version None)
Quarter: 2006Q4

REPORT INFORMATION
  Report Type: 
  Country: None (occurrence: None)
  Receive Date: 20061019
  Receipt Date: 20061006
  Transmission Date: 20070319
  Serious: Yes (Hospitalization)
  Sender: FDA-Public Use
  Company Number: DSK-2005-04397

PATIENT
  Age: 58 Year
  Sex: Male

DRUGS (6)
  1. TARIVID OTIC SOLUTION [Suspect]
     Indication: EAR INFECTION
     Dosage: 3 MG (1.5 MG, 2 - 2 ) 80 MG AURICULAR (OTIC)
     Route: 001
     Dates: start: 20050301, end: 20050308
  2. SOLUPRED (PREDNISOLONE SODIUM SULFOBENZOATE) (PREDNISOLONE SODIUM SULF [Suspect]
     Indication: EAR INFECTION
     Dosage: PER ORAL
     Route: 048
     Dates: start: 20050217, end: 20050225
  3. DERINOX (PREDNISOLONE, CETRIMONIUM BROMIDE, PHENYLEPHRINE HYDROCHLORID [Suspect]
     Dosage: 4 U SOLUTION FOR INHALATION INTRA-NASAL
     Route: 045
     Dates: start: 20050217, end: 20050221
  4. SAVARINE (CHLOROQUINE, PROGUANIL HYDROCHLORIDE)(CHLOROQUINE, PROGUANIL [Concomitant]
  5. AUGMENTIN '125' [Concomitant]
  6. INDAPAMIDE (INDAPAMIDE) (INDAPAMIDE) [Concomitant]

REACTIONS (6)
  - BAROTRAUMA [None]
  - EAR INFECTION [None]
  - INTERMITTENT CLAUDICATION [None]
  - TENDON RUPTURE [None]
  - TENDONITIS [None]
  - TYMPANIC MEMBRANE PERFORATION [None]
